FAERS Safety Report 5096300-5 (Version None)
Quarter: 2006Q3

REPORT INFORMATION
  Report Type: 
  Country: None (occurrence: None)
  Receive Date: 20060905
  Receipt Date: 20060825
  Transmission Date: 20061208
  Serious: Yes (Other)
  Sender: FDA-Public Use
  Company Number: US-JNJFOC-20060602321

PATIENT
  Sex: Female
  Weight: 72.58 kg

DRUGS (1)
  1. TOPAMAX [Suspect]
     Indication: WEIGHT DECREASED
     Route: 048

REACTIONS (8)
  - BLINDNESS [None]
  - EYE PAIN [None]
  - EYELID PAIN [None]
  - EYELID PTOSIS [None]
  - HEADACHE [None]
  - MYOPIA [None]
  - VISION BLURRED [None]
  - VISUAL DISTURBANCE [None]
